FAERS Safety Report 4602192-8 (Version None)
Quarter: 2005Q2

REPORT INFORMATION
  Report Type: 
  Country: None (occurrence: None)
  Receive Date: 20050215
  Receipt Date: 20041006
  Transmission Date: 20051028
  Serious: Yes (Hospitalization)
  Sender: FDA-Public Use
  Company Number: MC200400651

PATIENT
  Age: 63 Year
  Sex: Female

DRUGS (3)
  1. ANGIOMAX [Suspect]
     Dosage: 0.75 MG/KG, BOLUS, IV BOLUS
     Route: 040
     Dates: start: 20040524, end: 20040524
  2. ANGIOMAX [Suspect]
     Dosage: 1.75 MG/KG/HR, INTRAVENOUS
     Route: 042
     Dates: start: 20040524, end: 20040524
  3. ANGIOMAX [Suspect]
     Dosage: 0.3 MG/KG/HR, BOLUS, IV BOLUS
     Route: 040
     Dates: start: 20040524, end: 20040524

REACTIONS (2)
  - COAGULATION TIME ABNORMAL [None]
  - CORONARY ARTERY THROMBOSIS [None]
